FAERS Safety Report 8355441-7 (Version None)
Quarter: 2012Q2

REPORT INFORMATION
  Report Type: 
  Country: None (occurrence: None)
  Receive Date: 20120511
  Receipt Date: 20120503
  Transmission Date: 20120825
  Serious: Yes (Other)
  Sender: FDA-Public Use
  Company Number: CA-BAXTER-2012BH006141

PATIENT
  Age: 19 Year
  Sex: Female

DRUGS (9)
  1. GAMMAGARD LIQUID [Suspect]
  2. MONTELUKAST [Concomitant]
     Indication: ASTHMA
  3. PLAQUENIL [Suspect]
     Indication: ANGIOEDEMA
  4. CETIRIZINE [Concomitant]
     Route: 048
  5. RANITIDINE [Concomitant]
     Route: 048
  6. GAMMAGARD LIQUID [Suspect]
     Indication: ANGIOEDEMA
     Route: 042
  7. EPINEPHRINE [Concomitant]
     Indication: ANGIOEDEMA
     Route: 030
  8. METHYLPREDNISOLONE [Concomitant]
     Indication: ANGIOEDEMA
     Route: 042
  9. C-1 ESTERASE INHIBITOR [Concomitant]
     Indication: ANGIOEDEMA

REACTIONS (1)
  - POSTERIOR REVERSIBLE ENCEPHALOPATHY SYNDROME [None]
